FAERS Safety Report 7296131-1 (Version None)
Quarter: 2011Q1

REPORT INFORMATION
  Report Type: 
  Country: None (occurrence: None)
  Receive Date: 20110216
  Receipt Date: 20110208
  Transmission Date: 20110831
  Serious: Yes (Other)
  Sender: FDA-Public Use
  Company Number: CA-JNJFOC-20110203419

PATIENT
  Sex: Male
  Weight: 62 kg

DRUGS (3)
  1. UNKNOWN MEDICATION [Concomitant]
  2. PREDNISONE TAB [Concomitant]
     Route: 048
  3. REMICADE [Suspect]
     Indication: CROHN'S DISEASE
     Route: 042

REACTIONS (5)
  - CONTUSION [None]
  - FEELING ABNORMAL [None]
  - MOUTH HAEMORRHAGE [None]
  - RASH [None]
  - PYREXIA [None]
